FAERS Safety Report 10470426 (Version 1)
Quarter: 2014Q3

REPORT INFORMATION
  Report Type: Spontaneous
  Country: US (occurrence: None)
  Receive Date: 20140909
  Receipt Date: 20140909
  Transmission Date: 20150326
  Serious: Yes (Other)
  Sender: FDA-Public Use
  Company Number: 1384251

PATIENT
  Age: 91 Year
  Sex: Female

DRUGS (5)
  1. LOTEPREDNOL ETABONATE [Concomitant]
     Active Substance: LOTEPREDNOL ETABONATE
  2. POVIDONE IODINE [Concomitant]
     Active Substance: POVIDONE-IODINE
  3. DIFLUPREDNATE [Concomitant]
     Active Substance: DIFLUPREDNATE
  4. RANIBIZUMAB [Suspect]
     Active Substance: RANIBIZUMAB
     Indication: AGE-RELATED MACULAR DEGENERATION
     Dosage: INTRAVITREAL
  5. BROMFENAC (BROMFENAC SODIUM) [Concomitant]

REACTIONS (1)
  - Endophthalmitis [None]
